FAERS Safety Report 18232108 (Version 2)
Quarter: 2020Q4

REPORT INFORMATION
  Report Type: Other
  Country: BR (occurrence: BR)
  Receive Date: 20200904
  Receipt Date: 20201120
  Transmission Date: 20210113
  Serious: Yes (Other)
  Sender: FDA-Public Use
  Company Number: BR-ROCHE-2099787

PATIENT
  Age: 41 Year
  Sex: Female
  Weight: 83 kg

DRUGS (1)
  1. MABTHERA [Suspect]
     Active Substance: RITUXIMAB
     Indication: RHEUMATOID ARTHRITIS
     Dosage: MOST RECENT DOSE WAS ON 02/SEP/2020
     Route: 042
     Dates: start: 20170504

REACTIONS (4)
  - Laryngeal oedema [Recovered/Resolved]
  - Pruritus [Recovered/Resolved]
  - Hypersensitivity [Recovered/Resolved]
  - Hypertension [Recovered/Resolved]

NARRATIVE: CASE EVENT DATE: 20180328
